FAERS Safety Report 5486623-X (Version None)
Quarter: 2007Q4

REPORT INFORMATION
  Report Type: 
  Country: None (occurrence: None)
  Receive Date: 20071016
  Receipt Date: 20071008
  Transmission Date: 20080405
  Serious: Yes (Hospitalization)
  Sender: FDA-Public Use
  Company Number: PHBS2007JP14349

PATIENT
  Age: 61 Year
  Sex: Female
  Weight: 43 kg

DRUGS (9)
  1. ZOMETA [Suspect]
     Indication: METASTASES TO BONE
     Dosage: 4 MG, UNK
     Route: 042
     Dates: start: 20060515, end: 20061030
  2. BISPHONAL [Suspect]
     Dosage: 10 MG, UNK
     Route: 042
     Dates: start: 20020906, end: 20031117
  3. AREDIA [Suspect]
     Indication: METASTASES TO BONE
     Dosage: 90 MG, UNK
     Route: 042
     Dates: start: 20050117, end: 20060410
  4. NAVELBINE [Concomitant]
     Dates: start: 20060925, end: 20061113
  5. XELODA [Concomitant]
     Route: 048
     Dates: start: 20051024, end: 20061113
  6. FEMARA [Concomitant]
     Route: 048
     Dates: start: 20060626, end: 20060919
  7. TAXOTERE [Concomitant]
     Route: 042
     Dates: start: 20060123, end: 20060612
  8. AROMASIN [Concomitant]
     Route: 048
     Dates: start: 20031209, end: 20060116
  9. TAXOL [Concomitant]
     Route: 042
     Dates: start: 20020225, end: 20031208

REACTIONS (9)
  - ALVEOLAR OSTEITIS [None]
  - BIOPSY BONE [None]
  - BONE DISORDER [None]
  - HYPERBARIC OXYGEN THERAPY [None]
  - OSTEOMYELITIS [None]
  - OSTEONECROSIS [None]
  - SEQUESTRECTOMY [None]
  - TOOTH EXTRACTION [None]
  - TOOTHACHE [None]
